FAERS Safety Report 6499755-4 (Version None)
Quarter: 2009Q4

REPORT INFORMATION
  Report Type: 
  Country: None (occurrence: None)
  Receive Date: 20091215
  Receipt Date: 20091125
  Transmission Date: 20100525
  Serious: No
  Sender: FDA-Public Use
  Company Number: US-BAYER-200914538BCC

PATIENT
  Age: 78 Year
  Sex: Female
  Weight: 77 kg

DRUGS (12)
  1. ALEVE [Suspect]
     Indication: ARTHRALGIA
     Dosage: TOTAL DAILY DOSE: 220 MG  UNIT DOSE: 220 MG
     Route: 048
     Dates: start: 20090101, end: 20090101
  2. ALEVE [Concomitant]
     Dosage: TOTAL DAILY DOSE: 220 MG  UNIT DOSE: 220 MG
     Route: 048
  3. CARVEDILOL [Concomitant]
     Route: 065
  4. FUROSEMIDE [Concomitant]
     Route: 065
  5. LIPITOR [Concomitant]
     Route: 065
  6. POTASSIUM CHLORIDE [Concomitant]
     Route: 065
  7. EVISTA [Concomitant]
     Route: 065
  8. LEZOTHYROXINE [Concomitant]
     Route: 065
  9. GLUCOSAMINE [Concomitant]
     Route: 065
  10. CALTRATE [Concomitant]
     Route: 065
  11. CO Q TIN [Concomitant]
     Route: 065
  12. MAGNESIUM [Concomitant]
     Route: 065

REACTIONS (2)
  - JOINT SWELLING [None]
  - PAIN [None]
